FAERS Safety Report 23680168 (Version 3)
Quarter: 2024Q4

REPORT INFORMATION
  Report Type: Report from Study
  Country: DE (occurrence: DE)
  Receive Date: 20240327
  Receipt Date: 20241204
  Transmission Date: 20250114
  Serious: Yes (Hospitalization)
  Sender: ABBVIE
  Company Number: DE-ABBVIE-5689060

PATIENT
  Age: 41 Year
  Sex: Male
  Weight: 73 kg

DRUGS (13)
  1. SKYRIZI [Suspect]
     Active Substance: RISANKIZUMAB-RZAA
     Indication: Psoriasis
     Route: 058
     Dates: start: 20230126
  2. SPIRONOLACTONE [Concomitant]
     Active Substance: SPIRONOLACTONE
     Indication: Product used for unknown indication
     Dates: start: 202306
  3. SPIRONOLACTONE [Concomitant]
     Active Substance: SPIRONOLACTONE
     Indication: Product used for unknown indication
     Dosage: DOSE INCREASED
  4. CARVEDILOL [Concomitant]
     Active Substance: CARVEDILOL
     Indication: Product used for unknown indication
     Dates: start: 202306
  5. CARVEDILOL [Concomitant]
     Active Substance: CARVEDILOL
     Indication: Product used for unknown indication
     Dosage: DOSE INCREASED
  6. TORSEMIDE [Concomitant]
     Active Substance: TORSEMIDE
     Indication: Product used for unknown indication
     Dates: end: 202306
  7. LACTULOSE [Concomitant]
     Active Substance: LACTULOSE
     Indication: Product used for unknown indication
  8. LACTULOSE [Concomitant]
     Active Substance: LACTULOSE
     Indication: Product used for unknown indication
  9. PROPOFOL [Concomitant]
     Active Substance: PROPOFOL
     Indication: Oesophagogastroscopy
     Dosage: 1%
     Dates: start: 20230605, end: 20230605
  10. THIAMINE [Concomitant]
     Active Substance: THIAMINE
     Indication: Product used for unknown indication
     Dates: start: 202306
  11. THIAMINE [Concomitant]
     Active Substance: THIAMINE
     Indication: Product used for unknown indication
  12. MIDAZOLAM [Concomitant]
     Active Substance: MIDAZOLAM
     Indication: Oesophagogastroscopy
     Dates: start: 20230605, end: 20230605
  13. PANTOPRAZOLE [Concomitant]
     Active Substance: PANTOPRAZOLE
     Indication: Product used for unknown indication

REACTIONS (23)
  - Alcohol abuse [Recovered/Resolved with Sequelae]
  - Ascites [Recovered/Resolved]
  - Hyponatraemia [Unknown]
  - Dizziness [Unknown]
  - Cirrhosis alcoholic [Recovered/Resolved with Sequelae]
  - Faeces pale [Unknown]
  - Ectopic gastric mucosa [Unknown]
  - Cholestasis [Unknown]
  - Jaundice [Recovered/Resolved with Sequelae]
  - General physical health deterioration [Recovered/Resolved]
  - Varices oesophageal [Recovered/Resolved]
  - Reactive gastropathy [Recovered/Resolved]
  - Cachexia [Unknown]
  - Hypokalaemia [Unknown]
  - Vision blurred [Unknown]
  - Asthenia [Unknown]
  - Abdominal pain upper [Unknown]
  - Alcohol use [Unknown]
  - Hepatic mass [Unknown]
  - Hepatic vascular disorder [Unknown]
  - Splenomegaly [Unknown]
  - Fatigue [Recovered/Resolved]
  - Unevaluable event [Recovered/Resolved]

NARRATIVE: CASE EVENT DATE: 20230101
